FAERS Safety Report 9408072 (Version 1)
Quarter: 2013Q3

REPORT INFORMATION
  Report Type: Spontaneous
  Country: US (occurrence: US)
  Receive Date: 20130718
  Receipt Date: 20130718
  Transmission Date: 20140515
  Serious: Yes (Hospitalization)
  Sender: FDA-Public Use
  Company Number: US-TEVA-419206USA

PATIENT
  Age: 58 Year
  Sex: Male

DRUGS (2)
  1. PROAIR HFA [Suspect]
  2. FLEXERIL [Concomitant]

REACTIONS (1)
  - Pneumonia [Recovered/Resolved]
